FAERS Safety Report 10075820 (Version 2)
Quarter: 2014Q2

REPORT INFORMATION
  Report Type: Report from Study
  Country: VE (occurrence: VE)
  Receive Date: 20140414
  Receipt Date: 20140414
  Transmission Date: 20141212
  Serious: No
  Sender: FDA-Public Use
  Company Number: PHHY2014VE036356

PATIENT
  Age: 62 Year
  Sex: Female

DRUGS (5)
  1. TASIGNA [Suspect]
     Indication: CHRONIC MYELOID LEUKAEMIA
     Dosage: 600 MG, DAILY
     Route: 048
  2. DIOVAN [Suspect]
     Indication: HYPERTENSION
     Dosage: 80 MG
     Route: 048
  3. OMEPRAZOLE [Concomitant]
     Indication: PROPHYLAXIS
     Dosage: 40 MG, UNK
     Route: 048
  4. DAFLON (DIOSMIN/HESPERIDIN) [Concomitant]
     Dosage: 500 MG, UNK
     Route: 048
  5. ARTRODAR [Concomitant]
     Indication: OSTEOARTHRITIS
     Dosage: 50 MG, UNK
     Route: 048

REACTIONS (2)
  - Weight increased [Recovered/Resolved]
  - Anxiety [Recovered/Resolved]
